FAERS Safety Report 7673150-4 (Version None)
Quarter: 2011Q3

REPORT INFORMATION
  Report Type: 
  Country: None (occurrence: None)
  Receive Date: 20110810
  Receipt Date: 20110802
  Transmission Date: 20111222
  Serious: Yes (Hospitalization)
  Sender: FDA-Public Use
  Company Number: US-BIOGENIDEC-2011BI023008

PATIENT
  Age: 54 Year
  Sex: Male

DRUGS (11)
  1. MULTI-VITAMIN [Concomitant]
  2. SULAR [Concomitant]
     Route: 048
  3. GLUCOPHAGE [Concomitant]
     Route: 048
  4. FLONASE [Concomitant]
  5. AVONEX [Concomitant]
     Route: 030
     Dates: start: 20090707
  6. ALLEGRA [Concomitant]
     Route: 048
  7. CALTRATE PLUS [Concomitant]
     Route: 048
  8. PRISTIQ [Concomitant]
     Route: 048
  9. TYSABRI [Suspect]
     Indication: MULTIPLE SCLEROSIS
     Route: 042
     Dates: start: 20100413
  10. AVONEX [Concomitant]
     Indication: MULTIPLE SCLEROSIS
     Route: 030
     Dates: start: 19960521
  11. PLAVIX [Concomitant]
     Route: 048

REACTIONS (4)
  - SUICIDE ATTEMPT [None]
  - HERPES ZOSTER DISSEMINATED [None]
  - PNEUMONIA [None]
  - IMPETIGO [None]
